FAERS Safety Report 14198524 (Version 1)
Quarter: 2017Q4

REPORT INFORMATION
  Report Type: Spontaneous
  Country: RU (occurrence: RU)
  Receive Date: 20171117
  Receipt Date: 20171117
  Transmission Date: 20180321
  Serious: Yes (Other)
  Sender: FDA-Public Use
  Company Number: RU-AMGEN-RUSSP2017125314

PATIENT
  Age: 31 Year
  Sex: Female

DRUGS (5)
  1. FOLIC ACID. [Concomitant]
     Active Substance: FOLIC ACID
     Dosage: 1 DF, QD
     Route: 048
     Dates: start: 20131120
  2. NPLATE [Suspect]
     Active Substance: ROMIPLOSTIM
     Indication: PRODUCT USED FOR UNKNOWN INDICATION
     Dosage: UNK
     Route: 050
  3. VITRUM [Concomitant]
     Dosage: 1 DF, QD
     Route: 048
     Dates: start: 20140602, end: 20140902
  4. EUTIROX [Concomitant]
     Active Substance: LEVOTHYROXINE SODIUM
     Dosage: 75 MCG, QD
     Route: 048
     Dates: start: 20131120, end: 201702
  5. DUPHASTON [Concomitant]
     Active Substance: DYDROGESTERONE
     Dosage: 1 DF, QD
     Route: 048

REACTIONS (4)
  - Paternal exposure during pregnancy [Recovered/Resolved]
  - Caesarean section [Unknown]
  - Respiratory tract infection viral [Unknown]
  - Vulvovaginal candidiasis [Unknown]

NARRATIVE: CASE EVENT DATE: 201402
